FAERS Safety Report 8286952-0 (Version None)
Quarter: 2012Q2

REPORT INFORMATION
  Report Type: 
  Country: None (occurrence: None)
  Receive Date: 20120416
  Receipt Date: 20120328
  Transmission Date: 20120825
  Serious: No
  Sender: FDA-Public Use
  Company Number: US-ROXANE LABORATORIES, INC.-2012-RO-00913RO

PATIENT
  Sex: Male

DRUGS (6)
  1. ULTRAM [Concomitant]
  2. CYMBALTA [Concomitant]
  3. MOTRIN [Concomitant]
  4. BUPRENORPHINE HCL [Suspect]
     Indication: PAIN
     Dosage: 24 MG
     Route: 060
     Dates: start: 20120323
  5. VALIUM [Concomitant]
  6. FLEXERIL [Concomitant]

REACTIONS (1)
  - DRUG INEFFECTIVE [None]
